FAERS Safety Report 6446853-7 (Version None)
Quarter: 2009Q4

REPORT INFORMATION
  Report Type: 
  Country: None (occurrence: None)
  Receive Date: 20091119
  Receipt Date: 20090803
  Transmission Date: 20100525
  Serious: No
  Sender: FDA-Public Use
  Company Number: US-BRISTOL-MYERS SQUIBB COMPANY-14727044

PATIENT
  Sex: Female

DRUGS (1)
  1. CAPOZIDE 25/15 [Suspect]

REACTIONS (1)
  - COUGH [None]
